FAERS Safety Report 5363555-9 (Version None)
Quarter: 2007Q2

REPORT INFORMATION
  Report Type: 
  Country: None (occurrence: None)
  Receive Date: 20070618
  Receipt Date: 20070618
  Transmission Date: 20071010
  Serious: No
  Sender: FDA-Public Use
  Company Number: None

PATIENT
  Age: 32 Year
  Sex: Male
  Weight: 63.5036 kg

DRUGS (1)
  1. RISPERDAL [Suspect]
     Indication: PSYCHOTIC DISORDER
     Dosage: 1 MG 1X/DAY PO
     Route: 048
     Dates: start: 20061026, end: 20070102

REACTIONS (8)
  - ASTHENIA [None]
  - EMOTIONAL DISORDER [None]
  - ERECTILE DYSFUNCTION [None]
  - FATIGUE [None]
  - FEAR [None]
  - LIBIDO DECREASED [None]
  - LOSS OF LIBIDO [None]
  - SUICIDAL IDEATION [None]
